FAERS Safety Report 8096865-5 (Version None)
Quarter: 2012Q1

REPORT INFORMATION
  Report Type: 
  Country: None (occurrence: None)
  Receive Date: 20120129
  Receipt Date: 20111205
  Transmission Date: 20120608
  Serious: No
  Sender: FDA-Public Use
  Company Number: US-ABBOTT-11P-163-0880720-00

PATIENT
  Age: 62 Year
  Sex: Male

DRUGS (14)
  1. FERROUS SULFATE TAB [Concomitant]
     Indication: PRODUCT USED FOR UNKNOWN INDICATION
     Route: 048
  2. LANTUS [Concomitant]
     Indication: DIABETES MELLITUS
     Dosage: INSULIN DAILY
     Route: 058
  3. AMITRIPTYLINE HCL [Concomitant]
     Indication: PRODUCT USED FOR UNKNOWN INDICATION
     Dosage: DAILY
     Route: 048
  4. CILOSTAZOL [Concomitant]
     Indication: POOR PERIPHERAL CIRCULATION
     Route: 048
  5. WELCHOL [Concomitant]
     Indication: BLOOD CHOLESTEROL INCREASED
     Route: 048
     Dates: start: 20111001
  6. HYDROXYCHLOROQUINE SULFATE [Concomitant]
     Indication: ARTHRITIS
     Route: 048
     Dates: start: 20111001
  7. ASPIRIN [Concomitant]
     Indication: CARDIAC DISORDER
     Dosage: DAILY
     Route: 048
  8. ZETIA [Concomitant]
     Indication: BLOOD CHOLESTEROL INCREASED
     Dosage: DAILY
     Route: 048
  9. RANITIDINE [Concomitant]
     Indication: GASTRIC DISORDER
     Route: 048
  10. HUMALOG [Concomitant]
     Indication: DIABETES MELLITUS
     Route: 058
  11. LISINOPRIL [Concomitant]
     Indication: HYPERTENSION
     Dosage: DAILY
     Route: 048
  12. HUMIRA [Suspect]
     Indication: RHEUMATOID ARTHRITIS
     Dates: start: 20111001
  13. ALLOPURINOL [Concomitant]
     Indication: GOUT
     Dosage: DAILY
     Route: 048
  14. COLCRYS [Concomitant]
     Indication: GOUT
     Dosage: DAILY
     Route: 048

REACTIONS (1)
  - SKIN DISCOLOURATION [None]
